FAERS Safety Report 16406971 (Version 4)
Quarter: 2020Q2

REPORT INFORMATION
  Report Type: Report from Study
  Country: None (occurrence: US)
  Receive Date: 20190608
  Receipt Date: 20200603
  Transmission Date: 20200713
  Serious: Yes (Hospitalization, Other)
  Sender: FDA-Public Use
  Company Number: US-ABBVIE-19S-163-2811051-00

PATIENT
  Age: 81 Year
  Sex: Female
  Weight: 79 kg

DRUGS (13)
  1. VITAMIN B6 [Suspect]
     Active Substance: PYRIDOXINE HYDROCHLORIDE
     Indication: CARDIOVASCULAR EVENT PROPHYLAXIS
     Route: 048
     Dates: start: 2016
  2. SYNTHROID [Suspect]
     Active Substance: LEVOTHYROXINE SODIUM
     Route: 048
     Dates: start: 2018, end: 2018
  3. SYNTHROID [Suspect]
     Active Substance: LEVOTHYROXINE SODIUM
     Route: 048
     Dates: start: 2018, end: 201905
  4. SYNTHROID [Suspect]
     Active Substance: LEVOTHYROXINE SODIUM
     Route: 048
     Dates: start: 201905
  5. SYNTHROID [Suspect]
     Active Substance: LEVOTHYROXINE SODIUM
     Route: 048
  6. SYNTHROID [Suspect]
     Active Substance: LEVOTHYROXINE SODIUM
     Route: 048
     Dates: start: 1980, end: 1980
  7. SYNTHROID [Suspect]
     Active Substance: LEVOTHYROXINE SODIUM
     Route: 048
     Dates: start: 201011, end: 2018
  8. SYNTHROID [Suspect]
     Active Substance: LEVOTHYROXINE SODIUM
     Indication: HYPOTHYROIDISM
     Route: 048
     Dates: start: 1965, end: 1980
  9. VITAMIN B6 [Suspect]
     Active Substance: PYRIDOXINE HYDROCHLORIDE
     Indication: PERIPHERAL SWELLING
     Dosage: AS NEEDED
     Route: 048
     Dates: start: 2015, end: 2016
  10. VITAMIN C [Concomitant]
     Active Substance: ASCORBIC ACID
     Indication: PRODUCT USED FOR UNKNOWN INDICATION
  11. VITAMIN D3 [Concomitant]
     Active Substance: CHOLECALCIFEROL
     Indication: BONE DISORDER
  12. SYNTHROID [Suspect]
     Active Substance: LEVOTHYROXINE SODIUM
     Route: 048
     Dates: start: 1980, end: 201011
  13. ZANTAC [Concomitant]
     Active Substance: RANITIDINE HYDROCHLORIDE
     Indication: GASTROOESOPHAGEAL REFLUX DISEASE

REACTIONS (28)
  - Arthralgia [Not Recovered/Not Resolved]
  - Feeling abnormal [Recovering/Resolving]
  - Hyperhidrosis [Not Recovered/Not Resolved]
  - Contusion [Recovering/Resolving]
  - Haemorrhage [Recovered/Resolved]
  - Cardiovascular disorder [Unknown]
  - Nervousness [Not Recovered/Not Resolved]
  - Autoimmune thyroiditis [Recovered/Resolved]
  - Uterine disorder [Recovered/Resolved]
  - Hyperglycaemia [Recovering/Resolving]
  - Pollakiuria [Recovered/Resolved]
  - Poor peripheral circulation [Not Recovered/Not Resolved]
  - Chapped lips [Unknown]
  - Muscle spasms [Not Recovered/Not Resolved]
  - Heart rate irregular [Recovered/Resolved]
  - Thyroxine increased [Recovering/Resolving]
  - Chronic sinusitis [Not Recovered/Not Resolved]
  - Pain in extremity [Recovering/Resolving]
  - Varicose vein [Not Recovered/Not Resolved]
  - Gait disturbance [Not Recovered/Not Resolved]
  - Dysphonia [Unknown]
  - Muscle spasms [Recovered/Resolved]
  - Paraesthesia [Recovering/Resolving]
  - Peripheral swelling [Recovered/Resolved]
  - Hypotension [Recovering/Resolving]
  - Sinus congestion [Not Recovered/Not Resolved]
  - Hormone level abnormal [Recovered/Resolved]
  - Muscle spasms [Recovering/Resolving]

NARRATIVE: CASE EVENT DATE: 1980
